FAERS Safety Report 5429804-3 (Version None)
Quarter: 2007Q3

REPORT INFORMATION
  Report Type: 
  Country: None (occurrence: None)
  Receive Date: 20070827
  Receipt Date: 20070815
  Transmission Date: 20080115
  Serious: Yes (Hospitalization)
  Sender: FDA-Public Use
  Company Number: CIP07001590

PATIENT
  Age: 18 Year
  Sex: Male

DRUGS (1)
  1. ASACOL [Suspect]
     Indication: COLITIS ULCERATIVE
     Dosage: ORAL
     Route: 048
     Dates: start: 20070801, end: 20070801

REACTIONS (3)
  - DYSPHAGIA [None]
  - HERPES VIRUS INFECTION [None]
  - OESOPHAGITIS ULCERATIVE [None]
